FAERS Safety Report 8516337-0 (Version None)
Quarter: 2012Q3

REPORT INFORMATION
  Report Type: 
  Country: None (occurrence: None)
  Receive Date: 20120718
  Receipt Date: 20120709
  Transmission Date: 20120928
  Serious: Yes (Other)
  Sender: FDA-Public Use
  Company Number: TR-AMGEN-TURSP2012015749

PATIENT
  Age: 51 Year
  Sex: Male

DRUGS (2)
  1. ENBREL [Suspect]
     Indication: ANKYLOSING SPONDYLITIS
     Dosage: 50 MG, WEEKLY
     Route: 058
     Dates: start: 20110614, end: 20120221
  2. HIPERSAR PLUS [Concomitant]
     Indication: HYPERTENSION
     Dosage: ONCE A DAY
     Route: 048

REACTIONS (4)
  - CARDIAC FAILURE [None]
  - BACK PAIN [None]
  - DYSPNOEA [None]
  - DIABETES MELLITUS [None]
